FAERS Safety Report 24936081 (Version 1)
Quarter: 2025Q1

REPORT INFORMATION
  Report Type: Spontaneous
  Country: AU (occurrence: AU)
  Receive Date: 20250206
  Receipt Date: 20250206
  Transmission Date: 20250409
  Serious: Yes (Death, Other)
  Sender: EXELIXIS
  Company Number: AU-IPSEN Group, Research and Development-2024-21161

PATIENT
  Age: 0 Year
  Sex: Female
  Weight: 36.4 kg

DRUGS (6)
  1. CABOMETYX [Suspect]
     Active Substance: CABOZANTINIB S-MALATE
     Indication: Ewing^s sarcoma
     Dosage: 40 MG, QD (ON CYCLE 5)
     Route: 048
     Dates: start: 20240608, end: 20240924
  2. CABOMETYX [Suspect]
     Active Substance: CABOZANTINIB S-MALATE
     Indication: Off label use
  3. CYCLOPHOSPHAMIDE [Concomitant]
     Active Substance: CYCLOPHOSPHAMIDE
     Indication: Ewing^s sarcoma
     Route: 048
     Dates: start: 20240608, end: 20240928
  4. HYDROMORPHONE [Concomitant]
     Active Substance: HYDROMORPHONE
     Indication: Pain
     Route: 048
  5. METHADONE [Concomitant]
     Active Substance: METHADONE HYDROCHLORIDE
     Indication: Sarcoma
     Route: 048
  6. DOCUSATE SODIUM\SENNOSIDE B [Concomitant]
     Active Substance: DOCUSATE SODIUM\SENNOSIDE B
     Indication: Constipation
     Route: 048

REACTIONS (3)
  - Malignant neoplasm progression [Fatal]
  - Proteinuria [Recovered/Resolved]
  - Off label use [Unknown]

NARRATIVE: CASE EVENT DATE: 20240608
